FAERS Safety Report 8381712-4 (Version None)
Quarter: 2012Q2

REPORT INFORMATION
  Report Type: 
  Country: None (occurrence: None)
  Receive Date: 20120524
  Receipt Date: 20120515
  Transmission Date: 20120825
  Serious: Yes (Hospitalization)
  Sender: FDA-Public Use
  Company Number: US-BIOGENIDEC-2011BI013930

PATIENT
  Age: 66 Year
  Sex: Female

DRUGS (1)
  1. AVONEX [Suspect]
     Indication: MULTIPLE SCLEROSIS
     Route: 030
     Dates: start: 20110404, end: 20110404

REACTIONS (4)
  - MOBILITY DECREASED [None]
  - ABASIA [None]
  - MUSCLE SPASMS [None]
  - MULTIPLE SCLEROSIS RELAPSE [None]
